FAERS Safety Report 4385079-8 (Version None)
Quarter: 2004Q2

REPORT INFORMATION
  Report Type: 
  Country: None (occurrence: None)
  Receive Date: 20040625
  Receipt Date: 20030805
  Transmission Date: 20050107
  Serious: Yes (Other)
  Sender: FDA-Public Use
  Company Number: PHNU2003DE02974

PATIENT
  Sex: Female

DRUGS (5)
  1. LEPONEX / CLOZARIL (CLOZAPINE) [Suspect]
     Indication: SCHIZOPHRENIA
     Dosage: 12.5MG/DAY
     Route: 048
     Dates: start: 19940101, end: 20030801
  2. LEPONEX / CLOZARIL (CLOZAPINE) [Suspect]
     Dosage: UP TO 25MG/DAY
     Route: 048
  3. LEPONEX / CLOZARIL (CLOZAPINE) [Suspect]
     Dosage: UP TO 200MG/DAY
     Route: 048
     Dates: start: 19930101, end: 19940101
  4. DOXYCYCLINE [Suspect]
     Indication: ERYTHEMA
     Dosage: 200MG/DAY
     Route: 048
     Dates: start: 20030601, end: 20030701
  5. ZELDOX                                  /GFR/ [Concomitant]
     Dosage: 20MG/DAY
     Route: 065
     Dates: start: 20030101, end: 20030801

REACTIONS (6)
  - ANXIETY [None]
  - ARTHROPOD BITE [None]
  - DEPRESSED MOOD [None]
  - DRUG INTERACTION [None]
  - ERYTHEMA [None]
  - PSYCHOTIC DISORDER [None]
